FAERS Safety Report 22648458 (Version 2)
Quarter: 2023Q2

REPORT INFORMATION
  Report Type: Spontaneous
  Country: US (occurrence: US)
  Receive Date: 20230628
  Receipt Date: 20230630
  Transmission Date: 20230722
  Serious: No
  Sender: FDA-Public Use
  Company Number: US-AMGEN-USASP2023111252

PATIENT
  Age: 90 Year
  Sex: Female

DRUGS (2)
  1. REPATHA [Suspect]
     Active Substance: EVOLOCUMAB
     Indication: Hypercholesterolaemia
     Dosage: 140 MILLIGRAM, QMO
     Route: 058
     Dates: start: 2020
  2. REPATHA [Suspect]
     Active Substance: EVOLOCUMAB
     Dosage: 140 MILLIGRAM, QMO
     Route: 058

REACTIONS (5)
  - Device difficult to use [Unknown]
  - Drug dose omission by device [Unknown]
  - Product communication issue [Unknown]
  - Device use error [Unknown]
  - Off label use [Unknown]

NARRATIVE: CASE EVENT DATE: 20230508
